FAERS Safety Report 22043007 (Version 2)
Quarter: 2023Q1

REPORT INFORMATION
  Report Type: Spontaneous
  Country: US (occurrence: US)
  Receive Date: 20230228
  Receipt Date: 20230302
  Transmission Date: 20230418
  Serious: Yes (Hospitalization, Other)
  Sender: FDA-Public Use
  Company Number: US-009507513-2302USA008624

PATIENT
  Sex: Female
  Weight: 65.9 kg

DRUGS (12)
  1. KEYTRUDA [Suspect]
     Active Substance: PEMBROLIZUMAB
     Indication: Endometrial cancer
     Dosage: UNK, CYCLICAL
     Dates: start: 202212, end: 202212
  2. LENVATINIB MESYLATE [Suspect]
     Active Substance: LENVATINIB MESYLATE
     Indication: Endometrial cancer
     Dosage: 20 MILLIGRAM, QD
     Route: 048
     Dates: start: 20221220
  3. CALCIUM [Concomitant]
     Active Substance: CALCIUM
  4. VITAMIN D3 [Concomitant]
     Active Substance: CHOLECALCIFEROL
  5. METOPROLOL SUCCINATE [Concomitant]
     Active Substance: METOPROLOL SUCCINATE
  6. CANDESARTAN CILEXETIL\HYDROCHLOROTHIAZIDE [Concomitant]
     Active Substance: CANDESARTAN CILEXETIL\HYDROCHLOROTHIAZIDE
  7. NIFEDIPINE [Concomitant]
     Active Substance: NIFEDIPINE
  8. METFORMIN HYDROCHLORIDE [Concomitant]
     Active Substance: METFORMIN HYDROCHLORIDE
  9. EZETIMIBE [Concomitant]
     Active Substance: EZETIMIBE
  10. VITAMIN C [Concomitant]
     Active Substance: ASCORBIC ACID
  11. ACETAMINOPHEN\HYDROCODONE [Concomitant]
     Active Substance: ACETAMINOPHEN\HYDROCODONE
  12. ASPIRIN [Concomitant]
     Active Substance: ASPIRIN

REACTIONS (7)
  - Groin pain [Unknown]
  - Sepsis [Unknown]
  - Cholecystitis chronic [Unknown]
  - Immunodeficiency [Unknown]
  - Febrile neutropenia [Unknown]
  - Musculoskeletal pain [Unknown]
  - Leukopenia [Unknown]

NARRATIVE: CASE EVENT DATE: 20221222
